FAERS Safety Report 7602001-9 (Version None)
Quarter: 2011Q3

REPORT INFORMATION
  Report Type: 
  Country: None (occurrence: None)
  Receive Date: 20110711
  Receipt Date: 20110630
  Transmission Date: 20111222
  Serious: Yes (Other)
  Sender: FDA-Public Use
  Company Number: CA-PFIZER INC-2011132529

PATIENT
  Age: 89 Year
  Sex: Female

DRUGS (3)
  1. WARFARIN [Concomitant]
     Indication: CARDIAC VALVE DISEASE
     Dosage: 2.5 MG, 1X/DAY
     Route: 048
     Dates: start: 20010601
  2. DIGOXIN [Concomitant]
     Indication: CARDIAC VALVE DISEASE
     Dosage: 0.125 MG, 1X/DAY
     Route: 048
     Dates: start: 20040601
  3. XALATAN [Suspect]
     Indication: GLAUCOMA
     Dosage: 1 GTT, 1X/DAY
     Route: 047
     Dates: start: 20110101

REACTIONS (3)
  - DRY SKIN [None]
  - TEMPORAL ARTERITIS [None]
  - SKIN IRRITATION [None]
